FAERS Safety Report 7602080-9 (Version None)
Quarter: 2011Q3

REPORT INFORMATION
  Report Type: 
  Country: None (occurrence: None)
  Receive Date: 20110711
  Receipt Date: 20110627
  Transmission Date: 20111222
  Serious: Yes (Hospitalization, Other)
  Sender: FDA-Public Use
  Company Number: US-AMGEN-USASP2011011028

PATIENT
  Age: 51 Year
  Sex: Female

DRUGS (8)
  1. STELARA [Suspect]
  2. ESTRADIOL [Concomitant]
     Dosage: UNK
  3. DICLOFENAC [Concomitant]
     Dosage: UNK
  4. ESCITALOPRAM OXALATE [Concomitant]
     Dosage: UNK
  5. ENBREL [Suspect]
     Indication: PRODUCT USED FOR UNKNOWN INDICATION
     Dosage: UNK
  6. HUMIRA [Suspect]
     Indication: PSORIASIS
     Dosage: 40 MG, UNK
  7. OMEPRAZOLE [Concomitant]
     Dosage: UNK
  8. CYCLOSPORINE [Concomitant]
     Dosage: UNK

REACTIONS (15)
  - VISUAL FIELD DEFECT [None]
  - VIITH NERVE PARALYSIS [None]
  - ACTIVITIES OF DAILY LIVING IMPAIRED [None]
  - DYSGRAPHIA [None]
  - ENCEPHALOPATHY [None]
  - SPEECH DISORDER [None]
  - ASTHENIA [None]
  - BLINDNESS [None]
  - GAIT DISTURBANCE [None]
  - CONFUSIONAL STATE [None]
  - DEPRESSION [None]
  - DYSARTHRIA [None]
  - ANXIETY [None]
  - DEMYELINATION [None]
  - WALKING AID USER [None]
